FAERS Safety Report 18902377 (Version 1)
Quarter: 2021Q1

REPORT INFORMATION
  Report Type: Spontaneous
  Country: DE (occurrence: DE)
  Receive Date: 20210217
  Receipt Date: 20210217
  Transmission Date: 20210420
  Serious: Yes (Other)
  Sender: FDA-Public Use
  Company Number: DE-TEVA-2021-DE-1880140

PATIENT
  Age: 65 Year
  Sex: Female

DRUGS (1)
  1. IBANDRONSAEURE?RATIOPHARM 3 MG INJEKTIONSLOESUNG [Suspect]
     Active Substance: IBANDRONATE SODIUM
     Indication: BONE MARROW NECROSIS
     Dosage: 3 MILLIGRAM DAILY; ADMINISTERED FOR THE FIRST TIME
     Route: 042
     Dates: start: 20210128

REACTIONS (4)
  - Influenza like illness [Recovering/Resolving]
  - Tachycardia [Not Recovered/Not Resolved]
  - Atrial fibrillation [Recovering/Resolving]
  - Middle insomnia [Not Recovered/Not Resolved]

NARRATIVE: CASE EVENT DATE: 20210129
